FAERS Safety Report 17028622 (Version 1)
Quarter: 2019Q4

REPORT INFORMATION
  Report Type: Spontaneous
  Country: US (occurrence: US)
  Receive Date: 20191113
  Receipt Date: 20191113
  Transmission Date: 20200122
  Serious: Yes (Other)
  Sender: FDA-Public Use
  Company Number: US-BAXTER-2019BAX022958

PATIENT
  Age: 12 Year
  Sex: Male

DRUGS (2)
  1. CEFAZOLIN INJECTION [Suspect]
     Active Substance: CEFAZOLIN
     Indication: SUBCUTANEOUS ABSCESS
     Route: 042
  2. VANCOMYCIN INJECTION, USP [Suspect]
     Active Substance: VANCOMYCIN
     Indication: SUBCUTANEOUS ABSCESS
     Route: 042

REACTIONS (1)
  - Acute generalised exanthematous pustulosis [Recovering/Resolving]
